FAERS Safety Report 15130732 (Version 7)
Quarter: 2020Q2

REPORT INFORMATION
  Report Type: Spontaneous
  Country: IT (occurrence: IT)
  Receive Date: 20180711
  Receipt Date: 20200507
  Transmission Date: 20200713
  Serious: Yes (Hospitalization, Other)
  Sender: FDA-Public Use
  Company Number: IT-CELGENEUS-ITA-20180701094

PATIENT
  Age: 81 Year
  Sex: Female
  Weight: 55 kg

DRUGS (26)
  1. POSACONAZOLE [Concomitant]
     Active Substance: POSACONAZOLE
     Indication: ANTIFUNGAL PROPHYLAXIS
     Dosage: 600 MILLIGRAM
     Route: 048
     Dates: start: 20180320, end: 20180329
  2. TIOTROPIO [Concomitant]
     Active Substance: TIOTROPIUM BROMIDE
     Indication: PNEUMONIA
     Dosage: 18 UG
     Route: 055
     Dates: start: 20180410
  3. SODIUM CHLORIDE. [Concomitant]
     Active Substance: SODIUM CHLORIDE
     Indication: PROPHYLAXIS
     Route: 065
     Dates: start: 20180324, end: 20180328
  4. PANTORC [Concomitant]
     Active Substance: PANTOPRAZOLE SODIUM
     Indication: GASTRITIS PROPHYLAXIS
     Dosage: 40 MILLIGRAM
     Route: 048
     Dates: start: 20180303
  5. POSACONAZOLE [Concomitant]
     Active Substance: POSACONAZOLE
     Dosage: 300 MILLIGRAM
     Route: 048
     Dates: start: 20180329
  6. MEDROL [Concomitant]
     Active Substance: METHYLPREDNISOLONE
     Indication: RASH
     Dosage: 16 MILLIGRAM
     Route: 048
     Dates: start: 20180514, end: 20180520
  7. CETIRIZINA [Concomitant]
     Active Substance: CETIRIZINE HYDROCHLORIDE
     Indication: PRURITUS
     Route: 048
     Dates: start: 20180514
  8. ALLOPURINOL. [Concomitant]
     Active Substance: ALLOPURINOL
     Indication: TUMOUR LYSIS SYNDROME
     Route: 048
     Dates: start: 20180319, end: 20180325
  9. VENETOCLAX. [Concomitant]
     Active Substance: VENETOCLAX
     Dosage: 50 MILLIGRAM
     Route: 048
     Dates: start: 20190322
  10. TICHE [Concomitant]
     Indication: PROPHYLAXIS
     Dosage: 7.1429 MICROGRAM
     Route: 048
     Dates: start: 20180423
  11. LEVOXACIN [Concomitant]
     Active Substance: LEVOFLOXACIN
     Indication: PROPHYLAXIS
     Dosage: 500 MILLIGRAM
     Route: 048
     Dates: start: 20180329
  12. VENETOCLAX. [Concomitant]
     Active Substance: VENETOCLAX
     Dosage: 20 MILLIGRAM
     Route: 048
     Dates: start: 20190321, end: 20190321
  13. SPIROFUR [Concomitant]
     Active Substance: FUROSEMIDE\SPIRONOLACTONE
     Indication: OEDEMA
     Dosage: 50/20 MCG
     Route: 048
     Dates: start: 20180423
  14. AKYNZEO [Concomitant]
     Active Substance: NETUPITANT\PALONOSETRON HYDROCHLORIDE
     Dosage: 300.5 MILLIGRAM
     Route: 048
     Dates: start: 20180717, end: 20180717
  15. ALLOPURINOL. [Concomitant]
     Active Substance: ALLOPURINOL
     Indication: PROPHYLAXIS
  16. VENETOCLAX. [Concomitant]
     Active Substance: VENETOCLAX
     Indication: ACUTE MYELOID LEUKAEMIA
     Dosage: 10 MILLIGRAM
     Route: 048
     Dates: start: 20190320, end: 20190320
  17. TICHE [Concomitant]
     Indication: THYROID HORMONE REPLACEMENT THERAPY
     Dosage: 112 MILLIGRAM
     Route: 048
     Dates: start: 20180303
  18. CLEXANE [Concomitant]
     Active Substance: ENOXAPARIN SODIUM
     Indication: THROMBOSIS PROPHYLAXIS
     Dosage: 400 IU (INTERNATIONAL UNIT)
     Route: 058
     Dates: start: 20180319
  19. SODIUM CHLORIDE. [Concomitant]
     Active Substance: SODIUM CHLORIDE
     Indication: TUMOUR LYSIS SYNDROME
     Route: 065
     Dates: start: 20180319, end: 20180323
  20. NORVASC [Concomitant]
     Active Substance: AMLODIPINE BESYLATE
     Indication: HYPERTENSION
     Dosage: 5 MILLIGRAM
     Route: 048
     Dates: start: 20180312
  21. MEDROL [Concomitant]
     Active Substance: METHYLPREDNISOLONE
     Dosage: 8 MILLIGRAM
     Route: 048
     Dates: start: 20180521
  22. ROVAMICINA [Concomitant]
     Active Substance: SPIRAMYCIN
     Indication: STOMATITIS
     Dosage: 3000000 IU (INTERNATIONAL UNIT)
     Route: 048
     Dates: start: 20180614
  23. AZACITIDINE. [Suspect]
     Active Substance: AZACITIDINE
     Indication: ACUTE MYELOID LEUKAEMIA
     Dosage: 75 MILLIGRAM/SQ. METER
     Route: 058
     Dates: start: 20180320
  24. TICHE [Concomitant]
     Dosage: 85.7143 MICROGRAM
     Route: 048
     Dates: start: 20180424
  25. LASIX [Concomitant]
     Active Substance: FUROSEMIDE
     Indication: PROPHYLAXIS
     Dosage: 25 MILLIGRAM
     Route: 048
     Dates: start: 20180325
  26. AKYNZEO [Concomitant]
     Active Substance: NETUPITANT\PALONOSETRON HYDROCHLORIDE
     Indication: ANTIEMETIC SUPPORTIVE CARE
     Dosage: 300.5 MILLIGRAM
     Route: 048
     Dates: start: 20180520, end: 20180520

REACTIONS (1)
  - Arterial haemorrhage [Recovered/Resolved]

NARRATIVE: CASE EVENT DATE: 20180628
